FAERS Safety Report 6792733-7 (Version None)
Quarter: 2010Q2

REPORT INFORMATION
  Report Type: 
  Country: None (occurrence: None)
  Receive Date: 20100624
  Receipt Date: 20080917
  Transmission Date: 20101027
  Serious: No
  Sender: FDA-Public Use
  Company Number: US-PFIZER INC-2008078591

PATIENT
  Sex: Female
  Weight: 41.818 kg

DRUGS (6)
  1. XALATAN [Suspect]
     Indication: INTRAOCULAR PRESSURE INCREASED
     Route: 047
     Dates: start: 20080916, end: 20080917
  2. PROPANOLOL HCL [Interacting]
     Indication: PALPITATIONS
     Dosage: 10 MG DAILY EVERY DAY TDD:45 MG
     Dates: start: 19930101
  3. OPTIVE [Interacting]
     Indication: DRY EYE
     Dates: start: 20080915
  4. XANAX [Concomitant]
  5. LEVOXYL [Concomitant]
     Indication: THYROID DISORDER
  6. CITRUCEL [Concomitant]

REACTIONS (2)
  - DRUG INTERACTION [None]
  - PALPITATIONS [None]
